FAERS Safety Report 17392767 (Version 2)
Quarter: 2020Q1

REPORT INFORMATION
  Report Type: Spontaneous
  Country: JP (occurrence: JP)
  Receive Date: 20200207
  Receipt Date: 20200325
  Transmission Date: 20200409
  Serious: Yes (Other)
  Sender: FDA-Public Use
  Company Number: JP-JNJFOC-20200146638

PATIENT
  Age: 57 Year
  Sex: Male
  Weight: 70.7 kg

DRUGS (8)
  1. ARTIST [Concomitant]
     Active Substance: CARVEDILOL
     Indication: CARDIOVASCULAR EVENT PROPHYLAXIS
     Dosage: DAILY DOSE 15 MG
     Route: 048
     Dates: start: 20150214
  2. RIVAROXABAN [Suspect]
     Active Substance: RIVAROXABAN
     Indication: ATRIAL FIBRILLATION
     Dosage: DAILY DOSE 15 MG
     Route: 048
     Dates: start: 20191120, end: 20191129
  3. ARTIST [Concomitant]
     Active Substance: CARVEDILOL
     Dosage: DAILY DOSE 20 MG
     Route: 048
     Dates: start: 2016
  4. ARTIST [Concomitant]
     Active Substance: CARVEDILOL
     Dosage: DAILY DOSE 15 MG
     Dates: start: 201911
  5. POTASSIUM CHLORIDE. [Concomitant]
     Active Substance: POTASSIUM CHLORIDE
     Indication: ELECTROLYTE SUBSTITUTION THERAPY
     Dosage: DAILY DOSE 3600 MG
     Route: 048
     Dates: start: 20191120, end: 20191210
  6. RIVAROXABAN [Suspect]
     Active Substance: RIVAROXABAN
     Indication: THROMBOSIS PROPHYLAXIS
  7. RIVAROXABAN [Suspect]
     Active Substance: RIVAROXABAN
     Indication: CEREBROVASCULAR ACCIDENT PROPHYLAXIS
  8. MUCODYNE [Concomitant]
     Active Substance: CARBOCYSTEINE
     Indication: PRODUCTIVE COUGH
     Dosage: DAILY DOSE 1500 MG
     Route: 048
     Dates: start: 20191120, end: 20200106

REACTIONS (4)
  - Hepatic function abnormal [Recovering/Resolving]
  - Iron deficiency anaemia [Unknown]
  - Hypokalaemia [Unknown]
  - Pleurisy [Recovering/Resolving]

NARRATIVE: CASE EVENT DATE: 20191124
